FAERS Safety Report 9499423 (Version 1)
Quarter: 2013Q1

REPORT INFORMATION
  Report Type: Spontaneous
  Country: US (occurrence: None)
  Receive Date: 20130107
  Receipt Date: 20130107
  Transmission Date: 20140127
  Serious: Yes (Other)
  Sender: FDA-Public Use
  Company Number: PHEH2012US019543

PATIENT
  Age: 40 Year
  Sex: Female
  Weight: 56.7 kg

DRUGS (1)
  1. GILENYA [Suspect]
     Indication: MULTIPLE SCLEROSIS
     Route: 048
     Dates: start: 20120925, end: 20121004

REACTIONS (14)
  - Dyspnoea [None]
  - Chest pain [None]
  - Ear pain [None]
  - Eye irritation [None]
  - Myalgia [None]
  - Arthralgia [None]
  - Pain in extremity [None]
  - Local swelling [None]
  - Local swelling [None]
  - Asthenia [None]
  - Headache [None]
  - Abasia [None]
  - Mobility decreased [None]
  - Multiple sclerosis [None]
